FAERS Safety Report 7272843-0 (Version None)
Quarter: 2011Q1

REPORT INFORMATION
  Report Type: 
  Country: None (occurrence: None)
  Receive Date: 20110203
  Receipt Date: 20110201
  Transmission Date: 20110831
  Serious: Yes (Hospitalization)
  Sender: FDA-Public Use
  Company Number: JP-ABBOTT-10P-087-0675722-00

PATIENT
  Sex: Male

DRUGS (8)
  1. KALETRA [Suspect]
     Indication: HIV INFECTION
     Route: 048
     Dates: start: 20090204
  2. EPZICOM [Concomitant]
     Indication: HIV INFECTION
     Route: 048
     Dates: start: 20091112
  3. LACTOMIN [Concomitant]
     Indication: DIARRHOEA
     Route: 048
     Dates: start: 20070711
  4. LOPERAMIDE HYDROCHLORIDE [Concomitant]
     Indication: DIARRHOEA
     Route: 048
     Dates: start: 20070711
  5. MECOBALAMIN [Concomitant]
     Indication: HIV INFECTION
     Route: 048
     Dates: start: 20070711
  6. AMBROXOL HYDROCHLORIDE [Concomitant]
     Indication: BRONCHITIS CHRONIC
     Route: 048
     Dates: start: 20070711
  7. SODIUM GUALENATE HYDRATE/L-GLUTAMINE [Concomitant]
     Indication: GASTRITIS
     Route: 048
     Dates: start: 20070711
  8. TRUVADA [Suspect]
     Indication: HIV INFECTION
     Route: 048
     Dates: start: 20080625, end: 20091111

REACTIONS (1)
  - FANCONI SYNDROME [None]
